FAERS Safety Report 9688203 (Version 1)
Quarter: 2013Q4

REPORT INFORMATION
  Report Type: Spontaneous
  Country: US (occurrence: None)
  Receive Date: 20131113
  Receipt Date: 20131113
  Transmission Date: 20140711
  Serious: Yes (Disabling)
  Sender: FDA-Public Use
  Company Number: None

PATIENT
  Age: 55 Year
  Sex: Female
  Weight: 68.4 kg

DRUGS (1)
  1. SULFAMETHOXAZOLE + TRIMETHOPRIM [Suspect]
     Dosage: 1 PILL, TWICE DAILY, TAKEN BY MOUTH
     Route: 048
     Dates: start: 20131029, end: 20131110

REACTIONS (10)
  - Myalgia [None]
  - Rash [None]
  - Urticaria [None]
  - Musculoskeletal stiffness [None]
  - Headache [None]
  - Nausea [None]
  - Pruritus [None]
  - Arthralgia [None]
  - Neck pain [None]
  - Visual impairment [None]
